FAERS Safety Report 6210917-3 (Version None)
Quarter: 2009Q2

REPORT INFORMATION
  Report Type: 
  Country: None (occurrence: None)
  Receive Date: 20090601
  Receipt Date: 20090521
  Transmission Date: 20091009
  Serious: Yes (Life-Threatening, Hospitalization)
  Sender: FDA-Public Use
  Company Number: JP-BAXTER-2009BH009056

PATIENT
  Age: 67 Year
  Sex: Female

DRUGS (19)
  1. ENDOXAN BAXTER [Suspect]
     Indication: BREAST CANCER
     Route: 041
     Dates: start: 20080722, end: 20090421
  2. ENDOXAN BAXTER [Suspect]
     Indication: METASTASES TO BONE
     Route: 041
     Dates: start: 20080722, end: 20090421
  3. FARMORUBICIN [Suspect]
     Indication: BREAST CANCER
     Route: 041
     Dates: start: 20080722
  4. FARMORUBICIN [Suspect]
     Indication: METASTASES TO BONE
     Route: 041
     Dates: start: 20080722
  5. FARMORUBICIN [Suspect]
     Route: 041
  6. FARMORUBICIN [Suspect]
     Route: 041
  7. FARMORUBICIN [Suspect]
     Route: 041
     Dates: start: 20090421
  8. FARMORUBICIN [Suspect]
     Route: 041
     Dates: start: 20090421
  9. FLUOROURACIL [Suspect]
     Indication: BREAST CANCER
     Route: 041
     Dates: start: 20080722, end: 20090421
  10. FLUOROURACIL [Suspect]
     Indication: METASTASES TO BONE
     Route: 041
     Dates: start: 20080722, end: 20090421
  11. OXYCONTIN [Concomitant]
     Indication: BREAST CANCER
     Route: 048
     Dates: start: 20080519
  12. URSO 250 [Concomitant]
     Indication: BILIARY CIRRHOSIS PRIMARY
     Route: 048
     Dates: end: 20090421
  13. LANDEL [Concomitant]
     Indication: HYPERTENSION
     Route: 048
  14. SIMVASTATIN [Concomitant]
     Indication: HYPERLIPIDAEMIA
     Route: 048
     Dates: start: 20070320
  15. GASTER D [Concomitant]
     Indication: GASTRIC ULCER HAEMORRHAGE
     Route: 048
     Dates: start: 20080519
  16. VESICARE [Concomitant]
     Indication: POLLAKIURIA
     Route: 048
     Dates: start: 20090128
  17. NEUROVITAN [Concomitant]
     Indication: NEUROPATHY PERIPHERAL
     Route: 048
     Dates: start: 20090421
  18. KYTRIL [Concomitant]
     Indication: BREAST CANCER
     Route: 041
     Dates: start: 20090421, end: 20090421
  19. DEXAMETHASONE SODIUM PHOSPHATE [Concomitant]
     Indication: BREAST CANCER
     Route: 041
     Dates: start: 20090421, end: 20090421

REACTIONS (3)
  - INTERSTITIAL LUNG DISEASE [None]
  - NEUTROPENIA [None]
  - PULMONARY OEDEMA [None]
